FAERS Safety Report 10044011 (Version 1)
Quarter: 2014Q1

REPORT INFORMATION
  Report Type: Spontaneous
  Country: US (occurrence: US)
  Receive Date: 20140328
  Receipt Date: 20140328
  Transmission Date: 20141002
  Serious: No
  Sender: FDA-Public Use
  Company Number: US-MYLANLABS-2013S1016346

PATIENT
  Sex: Female

DRUGS (3)
  1. EMSAM (SELEGILINE TRANSDERMAL SYSTEM) [Suspect]
  2. PROVIGIL /01265601/ [Concomitant]
     Dosage: PROVIGIL
  3. XANAX [Concomitant]

REACTIONS (1)
  - Dermatitis contact [Not Recovered/Not Resolved]
